FAERS Safety Report 8586864-9 (Version None)
Quarter: 2012Q3

REPORT INFORMATION
  Report Type: 
  Country: None (occurrence: None)
  Receive Date: 20120810
  Receipt Date: 20120727
  Transmission Date: 20120928
  Serious: Yes (Other)
  Sender: FDA-Public Use
  Company Number: CHPA2012US017202

PATIENT
  Sex: Female

DRUGS (3)
  1. EXCEDRIN EXTRA STRENGTH TABLETS [Suspect]
     Indication: CARDIAC DISORDER
     Dosage: 1 DF, QD, 5-6 YEARS
     Route: 048
  2. DECONGESTANTS AND ANTIALLERGICS [Suspect]
     Dosage: UNK, UNK
  3. EXCEDRIN EXTRA STRENGTH TABLETS [Suspect]
     Dosage: 100 IN A MONTH
     Route: 048

REACTIONS (5)
  - MATERNAL EXPOSURE DURING PREGNANCY [None]
  - EYE DISORDER [None]
  - BLOOD PRESSURE INCREASED [None]
  - OFF LABEL USE [None]
  - UNDERDOSE [None]
